FAERS Safety Report 5317867-5 (Version None)
Quarter: 2007Q2

REPORT INFORMATION
  Report Type: 
  Country: None (occurrence: None)
  Receive Date: 20070430
  Receipt Date: 20070413
  Transmission Date: 20071010
  Serious: Yes (Death)
  Sender: FDA-Public Use
  Company Number: 2007RR-06607

PATIENT
  Age: 45 Year
  Sex: Female

DRUGS (34)
  1. AMOXICILLIN CLAVULANATE  POTASSIUM ( AMOXICILLIN CLAVULANATE) UNKNOWN [Suspect]
     Indication: BRONCHOPNEUMONIA
  2. LEVOFLOXACIN [Suspect]
     Indication: BRONCHOPNEUMONIA
  3. FUROSEMIDE [Suspect]
     Indication: RENAL IMPAIRMENT
     Dosage: INTRAVENOUS
     Route: 042
     Dates: start: 20021004
  4. CANREONATE (CANREONATE) [Suspect]
     Indication: RENAL IMPAIRMENT
     Dosage: ORAL
     Route: 048
     Dates: start: 20021004
  5. PANTOPRAZOLE SODIUM [Suspect]
     Indication: DRUG USE FOR UNKNOWN INDICATION
     Dates: start: 20021009
  6. ITRACONAZOLE [Suspect]
     Indication: CANDIDIASIS
     Dosage: 100 MG , QD,
     Dates: start: 20021009
  7. RABEPRAZOLE SODIUM (RABEPRAZOLE) [Concomitant]
  8. METOCLOPRAMIDE [Concomitant]
  9. CALCIUM LACTOGLUCONATE/CARBONATE [Concomitant]
  10. NYSTATIN [Concomitant]
  11. CEFACLOR [Concomitant]
  12. NACL  INFUSION [Concomitant]
  13. OMEPRAZOLE [Concomitant]
  14. CORTISONE ACETATE [Concomitant]
  15. CALCITRIOL [Concomitant]
  16. ALUMINIUM/MAGNESIUM HYDROXIDE [Concomitant]
  17. FLUDROCORTISONE ACETATE [Concomitant]
  18. AMOXICILLIN AND CLAVULANATE POTASSIUM [Concomitant]
  19. LEVOFLOXACIN [Concomitant]
  20. DIAZEPAM [Concomitant]
  21. HALOPERIDOL [Concomitant]
  22. PIPERACILLIN [Concomitant]
  23. HYDROCORTISONE HEMISUCCINATE [Concomitant]
  24. RANITIDINE [Concomitant]
  25. RIFAMYCIN [Concomitant]
  26. GENTAMICIN [Concomitant]
  27. POVIDONE IODINE [Concomitant]
  28. CHLORPHENIRAMINE MALEATE [Concomitant]
  29. GLUCOSE  5 % INFUSION [Concomitant]
  30. MGCACI [Concomitant]
  31. CA GLUCONATE [Concomitant]
  32. KCI [Concomitant]
  33. ALBUMIN (HUMAN) [Concomitant]
  34. INSULIN (INSULIN) [Concomitant]

REACTIONS (18)
  - AORTIC VALVE SCLEROSIS [None]
  - ATROPHY [None]
  - BLOOD CULTURE POSITIVE [None]
  - BRAIN OEDEMA [None]
  - BRONCHOPNEUMONIA [None]
  - CACHEXIA [None]
  - CEREBRAL CALCIFICATION [None]
  - ENDOMETRIAL ATROPHY [None]
  - GASTRIC MUCOSAL LESION [None]
  - HYPOCALCAEMIA [None]
  - HYPOKALAEMIA [None]
  - OLIGURIA [None]
  - OVARIAN ATROPHY [None]
  - PARATHYROID DISORDER [None]
  - SEPTIC SHOCK [None]
  - SKIN BACTERIAL INFECTION [None]
  - THYROID ATROPHY [None]
  - TOXIC EPIDERMAL NECROLYSIS [None]
